FAERS Safety Report 14183750 (Version 16)
Quarter: 2018Q3

REPORT INFORMATION
  Report Type: Spontaneous
  Country: GB (occurrence: GB)
  Receive Date: 20171113
  Receipt Date: 20180814
  Transmission Date: 20181010
  Serious: Yes (Other)
  Sender: FDA-Public Use
  Company Number: GB-TEVA-824005ACC

PATIENT
  Age: 17 Year
  Sex: Female

DRUGS (25)
  1. TOPOTECAN [Suspect]
     Active Substance: TOPOTECAN HYDROCHLORIDE
     Indication: MALIGNANT NEOPLASM PROGRESSION
  2. VINCRISTINE [Suspect]
     Active Substance: VINCRISTINE
     Indication: MALIGNANT NEOPLASM PROGRESSION
  3. ONDANSETRON [Suspect]
     Active Substance: ONDANSETRON
     Indication: PRODUCT USED FOR UNKNOWN INDICATION
     Route: 065
  4. PEGYLATED LIPOSOMAL IRINOTECAN [Suspect]
     Active Substance: IRINOTECAN HYDROCHLORIDE
     Indication: MALIGNANT NEOPLASM PROGRESSION
  5. IFOSFAMIDE INJECTION 2G [Suspect]
     Active Substance: IFOSFAMIDE
     Route: 065
  6. ACTINOMYCIN D [Concomitant]
     Active Substance: DACTINOMYCIN
     Indication: DESMOPLASTIC SMALL ROUND CELL TUMOUR
     Dosage: IVA 5 CYCLES ; CYCLICAL
     Route: 042
  7. SEPTRIN [Concomitant]
     Active Substance: SULFAMETHOXAZOLE\TRIMETHOPRIM
     Indication: PRODUCT USED FOR UNKNOWN INDICATION
     Dosage: 960 MILLIGRAM DAILY;
     Route: 065
  8. DOCETAXEL. [Suspect]
     Active Substance: DOCETAXEL
     Indication: MALIGNANT NEOPLASM PROGRESSION
  9. VINORELBINE [Suspect]
     Active Substance: VINORELBINE\VINORELBINE TARTRATE
     Indication: DESMOPLASTIC SMALL ROUND CELL TUMOUR
     Dosage: 1 UNIT,4 CYCLES, MAINTENANCE THERAPY ; CYCLICAL
     Route: 065
  10. CYCLOPHOSPHAMIDE INJECTION 1G [Suspect]
     Active Substance: CYCLOPHOSPHAMIDE
     Indication: DESMOPLASTIC SMALL ROUND CELL TUMOUR
     Dosage: 3 LINES OF CHEMOTHERAPY  4 CYCLES, MAINTENANCE THERAPY ; CYCLICAL
     Route: 065
  11. SEPTRIN [Suspect]
     Active Substance: SULFAMETHOXAZOLE\TRIMETHOPRIM
     Route: 065
  12. DOXORUBICIN [Concomitant]
     Active Substance: DOXORUBICIN
     Indication: DESMOPLASTIC SMALL ROUND CELL TUMOUR
     Dosage: 1 UNIT,4 CYCLES ; CYCLICAL
     Route: 065
  13. DACTINOMYCIN [Concomitant]
     Active Substance: DACTINOMYCIN
     Dosage: IVA 5 CYCLES; CYCLICAL
     Route: 042
  14. TEMOZOLOMIDE. [Suspect]
     Active Substance: TEMOZOLOMIDE
     Indication: DESMOPLASTIC SMALL ROUND CELL TUMOUR
     Dosage: 3 LINES OF CHEMOTHERAPY
     Route: 065
  15. TEMOZOLOMIDE. [Suspect]
     Active Substance: TEMOZOLOMIDE
     Indication: MALIGNANT NEOPLASM PROGRESSION
  16. CYCLOPHOSPHAMIDE INJECTION 1G [Suspect]
     Active Substance: CYCLOPHOSPHAMIDE
     Indication: MALIGNANT NEOPLASM PROGRESSION
     Dosage: 4 CYCLES, MAINTENANCE THERAPY ; CYCLICAL
     Route: 065
  17. CYCLIZINE [Suspect]
     Active Substance: CYCLIZINE
     Indication: PRODUCT USED FOR UNKNOWN INDICATION
     Route: 065
  18. DACTINOMYCIN [Concomitant]
     Active Substance: DACTINOMYCIN
     Indication: DESMOPLASTIC SMALL ROUND CELL TUMOUR
     Dosage: 4 CYCLES; CYCLICAL
     Route: 065
  19. DOCETAXEL. [Suspect]
     Active Substance: DOCETAXEL
     Indication: DESMOPLASTIC SMALL ROUND CELL TUMOUR
     Dosage: 3 LINES OF CHEMOTHERAPY
     Route: 065
  20. PAZOPANIB [Concomitant]
     Active Substance: PAZOPANIB
     Indication: PRODUCT USED FOR UNKNOWN INDICATION
     Route: 065
  21. GEMCITABINE [Suspect]
     Active Substance: GEMCITABINE\GEMCITABINE HYDROCHLORIDE
     Indication: DESMOPLASTIC SMALL ROUND CELL TUMOUR
     Dosage: 3 LINES OF CHEMOTHERAPY
     Route: 065
  22. PEGYLATED LIPOSOMAL IRINOTECAN [Suspect]
     Active Substance: IRINOTECAN HYDROCHLORIDE
     Indication: DESMOPLASTIC SMALL ROUND CELL TUMOUR
     Dosage: 3 LINES OF CHEMOTHERAPY
     Route: 065
  23. TOPOTECAN [Suspect]
     Active Substance: TOPOTECAN HYDROCHLORIDE
     Indication: DESMOPLASTIC SMALL ROUND CELL TUMOUR
     Dosage: 3 LINES OF CHEMOTHERAPY
     Route: 065
  24. MELATONIN [Suspect]
     Active Substance: MELATONIN
     Indication: PRODUCT USED FOR UNKNOWN INDICATION
     Dosage: 6 MILLIGRAM DAILY;
     Route: 065
  25. VINCRISTINE [Suspect]
     Active Substance: VINCRISTINE
     Indication: DESMOPLASTIC SMALL ROUND CELL TUMOUR
     Dosage: 1 UNIT, 4 CYCLES ; CYCLICAL
     Route: 042

REACTIONS (10)
  - Metastases to liver [Unknown]
  - Desmoplastic small round cell tumour [Unknown]
  - Ascites [Recovering/Resolving]
  - Drug ineffective [Unknown]
  - Metastases to lymph nodes [Unknown]
  - Metastases to peritoneum [Unknown]
  - Desmoplastic small round cell tumour [Unknown]
  - Malignant neoplasm progression [Unknown]
  - Drug effect incomplete [Unknown]
  - Off label use [Unknown]

NARRATIVE: CASE EVENT DATE: 2017
